FAERS Safety Report 26011166 (Version 2)
Quarter: 2025Q4

REPORT INFORMATION
  Report Type: Spontaneous
  Country: US (occurrence: US)
  Receive Date: 20251107
  Receipt Date: 20251107
  Transmission Date: 20260118
  Serious: Yes (Life-Threatening)
  Sender: SANDOZ
  Company Number: US-SANDOZ-SDZ2025US083128

PATIENT
  Age: 83 Year
  Sex: Female

DRUGS (1)
  1. NOREPINEPHRINE BITARTRATE [Suspect]
     Active Substance: NOREPINEPHRINE BITARTRATE
     Indication: Distributive shock
     Dosage: 0.2UG/KG/MIN
     Route: 042

REACTIONS (1)
  - Drug ineffective [Unknown]
